FAERS Safety Report 8683152 (Version 2)
Quarter: 2013Q4

REPORT INFORMATION
  Report Type: Spontaneous
  Country: US (occurrence: US)
  Receive Date: 20120726
  Receipt Date: 20131101
  Transmission Date: 20140711
  Serious: No
  Sender: FDA-Public Use
  Company Number: US-009507513-1207USA001638

PATIENT
  Age: 48 Year
  Sex: Female

DRUGS (4)
  1. AZASITE [Suspect]
     Indication: CONJUNCTIVITIS
     Dosage: 2 DF, BID
     Route: 047
     Dates: start: 20120518
  2. AZASITE [Suspect]
     Dosage: 1 DF, QD
     Dates: start: 201205
  3. VITAMINS (UNSPECIFIED) [Concomitant]
  4. HORMONES (UNSPECIFIED) [Concomitant]

REACTIONS (2)
  - Eye irritation [Recovered/Resolved]
  - Eye pruritus [Recovered/Resolved]
